FAERS Safety Report 12171018 (Version 2)
Quarter: 2016Q2

REPORT INFORMATION
  Report Type: Report from Study
  Country: BR (occurrence: BR)
  Receive Date: 20160311
  Receipt Date: 20160413
  Transmission Date: 20160815
  Serious: Yes (Other)
  Sender: FDA-Public Use
  Company Number: PHHY2015BR167163

PATIENT
  Sex: Female
  Weight: 55 kg

DRUGS (3)
  1. DASATINIB [Concomitant]
     Active Substance: DASATINIB
     Indication: CHRONIC MYELOID LEUKAEMIA
     Dosage: 1 DF, QD
     Route: 065
  2. TASIGNA [Suspect]
     Active Substance: NILOTINIB
     Indication: CHRONIC MYELOID LEUKAEMIA
     Dosage: 4 DF, QD
     Route: 065
  3. TASIGNA [Suspect]
     Active Substance: NILOTINIB
     Dosage: 2 DF Q12H
     Route: 048
     Dates: start: 2015, end: 20160212

REACTIONS (10)
  - Thrombocytopenia [Unknown]
  - Weight increased [Unknown]
  - Nausea [Unknown]
  - Pain in extremity [Unknown]
  - Osteoporosis [Unknown]
  - Diarrhoea [Unknown]
  - Diabetes mellitus [Unknown]
  - Pulpitis dental [Unknown]
  - Headache [Unknown]
  - Malaise [Unknown]
